FAERS Safety Report 5154480-7 (Version None)
Quarter: 2006Q4

REPORT INFORMATION
  Report Type: 
  Country: None (occurrence: None)
  Receive Date: 20061114
  Receipt Date: 19920505
  Transmission Date: 20070319
  Serious: Yes (Death)
  Sender: FDA-Public Use
  Company Number: 2006122552

PATIENT
  Age: 63 Year
  Sex: Male

DRUGS (3)
  1. IRINOTECAN HCL [Suspect]
     Indication: COLON CANCER
     Dosage: (115 MG/M*2, EVERY WEEK), INTRAVENOUS
     Route: 042
     Dates: start: 19920218, end: 19920220
  2. ATROPINE [Concomitant]
  3. PLASMION (GELATIN, MAGNESIUM CHLORIDE ANHYDROUS, POTASSIUM CHLORIDE, S [Concomitant]

REACTIONS (11)
  - ANAEMIA [None]
  - APLASIA [None]
  - BLOOD CREATININE INCREASED [None]
  - BLOOD POTASSIUM INCREASED [None]
  - DEHYDRATION [None]
  - DIARRHOEA [None]
  - GASTROINTESTINAL HAEMORRHAGE [None]
  - NAUSEA [None]
  - PANCYTOPENIA [None]
  - SEPTIC SHOCK [None]
  - VOMITING [None]
